FAERS Safety Report 8964815 (Version 5)
Quarter: 2013Q2

REPORT INFORMATION
  Report Type: Spontaneous
  Country: US (occurrence: US)
  Receive Date: 20121213
  Receipt Date: 20130521
  Transmission Date: 20140414
  Serious: No
  Sender: FDA-Public Use
  Company Number: US-009507513-1212USA003456

PATIENT
  Age: 26 Year
  Sex: Female
  Weight: 81.63 kg

DRUGS (3)
  1. NEXPLANON [Suspect]
     Indication: CONTRACEPTION
     Dosage: 1 DF, UNK
     Route: 059
     Dates: start: 20120525, end: 20121206
  2. NEXPLANON [Suspect]
     Dosage: 1 DF, UNK
     Route: 059
     Dates: start: 20121206
  3. VITAMINS (UNSPECIFIED) [Concomitant]
     Indication: PRENATAL CARE

REACTIONS (7)
  - Contusion [Recovering/Resolving]
  - Uterine spasm [Recovering/Resolving]
  - Pain in extremity [Recovering/Resolving]
  - Device breakage [Recovered/Resolved]
  - Device deployment issue [Recovered/Resolved]
  - Device dislocation [Recovered/Resolved]
  - Implant site scar [Unknown]
